FAERS Safety Report 9198769 (Version 1)
Quarter: 2013Q1

REPORT INFORMATION
  Report Type: Spontaneous
  Country: US (occurrence: None)
  Receive Date: 20130327
  Receipt Date: 20130327
  Transmission Date: 20140127
  Serious: Yes (Hospitalization)
  Sender: FDA-Public Use
  Company Number: None

PATIENT
  Age: 59 Year
  Sex: Male
  Weight: 53.1 kg

DRUGS (6)
  1. BEVACIZUMAB [Suspect]
     Indication: GLIOBLASTOMA
     Dosage: 10MG/KG DAYS 1 + 15 IV
     Route: 042
     Dates: start: 20130307, end: 20130321
  2. BEVACIZUMAB [Suspect]
     Indication: RECURRENT CANCER
     Dosage: 10MG/KG DAYS 1 + 15 IV
     Route: 042
     Dates: start: 20130307, end: 20130321
  3. CARBOPLATIN [Suspect]
     Indication: GLIOBLASTOMA
     Dosage: AUC 6 DAY 1 IV
     Route: 042
     Dates: start: 20130307
  4. CARBOPLATIN [Suspect]
     Indication: RECURRENT CANCER
     Dosage: AUC 6 DAY 1 IV
     Route: 042
     Dates: start: 20130307
  5. NORVASC [Concomitant]
  6. ALPHAGAN P [Concomitant]

REACTIONS (1)
  - Convulsion [None]
